FAERS Safety Report 8943154 (Version 2)
Quarter: 2013Q1

REPORT INFORMATION
  Report Type: Spontaneous
  Country: BR (occurrence: BR)
  Receive Date: 20121204
  Receipt Date: 20130104
  Transmission Date: 20140127
  Serious: Yes (Other)
  Sender: FDA-Public Use
  Company Number: PHHY2012BR110176

PATIENT
  Sex: Male
  Weight: 75 kg

DRUGS (5)
  1. FORASEQ [Suspect]
     Indication: DYSPNOEA
     Dosage: 1 DF, BID
  2. METFORMIN [Concomitant]
     Indication: DIABETES MELLITUS
  3. ENALAPRIL [Concomitant]
     Indication: HYPERTENSION
  4. PROPRANOLOL [Concomitant]
     Indication: HYPERTENSION
  5. AMLODIPINE [Concomitant]
     Indication: HYPERTENSION

REACTIONS (5)
  - Bronchitis [Unknown]
  - Eye disorder [Unknown]
  - Cataract [Unknown]
  - Back pain [Not Recovered/Not Resolved]
  - Dyspnoea [Not Recovered/Not Resolved]
